FAERS Safety Report 5981434-0 (Version None)
Quarter: 2008Q4

REPORT INFORMATION
  Report Type: 
  Country: None (occurrence: None)
  Receive Date: 20081128
  Receipt Date: 20081113
  Transmission Date: 20090506
  Serious: Yes (Death, Hospitalization)
  Sender: FDA-Public Use
  Company Number: 2008US003138

PATIENT
  Age: 31 Year
  Sex: Male

DRUGS (2)
  1. PROGRAF [Suspect]
     Indication: RENAL TRANSPLANT
     Dosage: 3  MG, UID/QD, ORAL
     Route: 048
  2. PREDNISOLONE ACETATE [Concomitant]

REACTIONS (18)
  - ACUTE RESPIRATORY FAILURE [None]
  - BRAIN STEM SYNDROME [None]
  - CSF TEST ABNORMAL [None]
  - CULTURE URINE POSITIVE [None]
  - DYSURIA [None]
  - FUNGAL INFECTION [None]
  - GENERAL PHYSICAL HEALTH DETERIORATION [None]
  - HAEMATURIA [None]
  - HYDROCEPHALUS [None]
  - HYPOXIA [None]
  - KIDNEY TRANSPLANT REJECTION [None]
  - NEUROLOGICAL DECOMPENSATION [None]
  - POSTURING [None]
  - PSEUDOMONAS INFECTION [None]
  - PYREXIA [None]
  - RENAL IMPAIRMENT [None]
  - TUBULOINTERSTITIAL NEPHRITIS [None]
  - URINARY TRACT OBSTRUCTION [None]
